FAERS Safety Report 18360053 (Version 1)
Quarter: 2020Q4

REPORT INFORMATION
  Report Type: Spontaneous
  Country: BE (occurrence: BE)
  Receive Date: 20201008
  Receipt Date: 20201008
  Transmission Date: 20210114
  Serious: Yes (Hospitalization, Other)
  Sender: FDA-Public Use
  Company Number: NVSC2020BE266580

PATIENT
  Age: 56 Year
  Sex: Male

DRUGS (12)
  1. TACROLIMUS. [Suspect]
     Active Substance: TACROLIMUS
     Dosage: 2.5 MG, QD
     Route: 048
     Dates: start: 20161229, end: 20170129
  2. TACROLIMUS. [Suspect]
     Active Substance: TACROLIMUS
     Indication: PROPHYLAXIS AGAINST TRANSPLANT REJECTION
     Dosage: 3 MG, QD
     Route: 048
     Dates: start: 20150602, end: 20161222
  3. METHYLPREDNISOLON [Concomitant]
     Active Substance: METHYLPREDNISOLONE
     Indication: IMMUNOSUPPRESSION
     Dosage: 8 UNK, QD
     Route: 065
     Dates: start: 20161225, end: 20161226
  4. TACROLIMUS. [Suspect]
     Active Substance: TACROLIMUS
     Dosage: 2 MG, QD
     Route: 048
     Dates: start: 20161223, end: 20161228
  5. METHYLPREDNISOLON [Concomitant]
     Active Substance: METHYLPREDNISOLONE
     Indication: INFECTION
     Dosage: 20 UNK, QD
     Route: 065
     Dates: start: 20161221, end: 20161222
  6. HYDROCORTICONE [Concomitant]
     Active Substance: HYDROCORTISONE
     Dosage: 50 UNK, QD
     Route: 065
     Dates: start: 20161223, end: 20161225
  7. HYDROCORTICONE [Concomitant]
     Active Substance: HYDROCORTISONE
     Indication: INFECTION
     Dosage: 20 UNK, QD
     Route: 065
     Dates: start: 20161223, end: 20161223
  8. HYDROCORTICONE [Concomitant]
     Active Substance: HYDROCORTISONE
     Dosage: 50 UNK, QD
     Route: 065
     Dates: start: 20161228, end: 20161228
  9. HYDROCORTICONE [Concomitant]
     Active Substance: HYDROCORTISONE
     Dosage: 50 UNK, QD
     Route: 065
     Dates: start: 20170104, end: 20170106
  10. TACROLIMUS. [Suspect]
     Active Substance: TACROLIMUS
     Dosage: 2 MG, QD
     Route: 048
     Dates: start: 20170130
  11. TACROLIMUS. [Suspect]
     Active Substance: TACROLIMUS
     Dosage: 2.5 MG, QD
     Route: 048
     Dates: start: 20170410
  12. METHYLPREDNISOLON [Concomitant]
     Active Substance: METHYLPREDNISOLONE
     Dosage: 4 UNK, QD
     Route: 065
     Dates: start: 20161227

REACTIONS (5)
  - Influenza [Recovered/Resolved]
  - Lymphangitis [Recovered/Resolved]
  - Cellulitis [Recovered/Resolved]
  - Squamous cell carcinoma of skin [Recovered/Resolved]
  - Small intestinal obstruction [Recovered/Resolved]

NARRATIVE: CASE EVENT DATE: 20161009
